FAERS Safety Report 9564574 (Version 2)
Quarter: 2013Q4

REPORT INFORMATION
  Report Type: Spontaneous
  Country: US (occurrence: US)
  Receive Date: 20130930
  Receipt Date: 20131119
  Transmission Date: 20140711
  Serious: Yes (Death)
  Sender: FDA-Public Use
  Company Number: US-PFIZER INC-2013277888

PATIENT
  Age: 68 Year
  Sex: Female

DRUGS (10)
  1. SUTENT [Suspect]
     Indication: METASTATIC RENAL CELL CARCINOMA
     Dosage: 50 MG, DAILY, 4 WEEKS ON AND 2 WEEKS OFF
     Dates: start: 2013
  2. AMLODIPINE BESILATE [Concomitant]
     Dosage: 5 MG, UNK
  3. AZOR [Concomitant]
     Dosage: 5-40 MG, UNK
  4. ZOFRAN [Concomitant]
     Dosage: 4 MG, AS NEEDED (1 TAB QHRS OR PRN)
  5. AMBIEN [Concomitant]
     Dosage: 10 MG, UNK
  6. D3-5 [Concomitant]
     Dosage: 5000 IU, UNK
  7. MORPHINE [Concomitant]
     Dosage: UNK
  8. OXYCODONE HYDROCHLORIDE [Concomitant]
     Dosage: 10 MG, UNK
  9. PREDNISONE [Concomitant]
     Dosage: 5 MG, UNK
  10. SPIRONOLACTONE [Concomitant]
     Dosage: UNK

REACTIONS (7)
  - Disease progression [Fatal]
  - Metastatic renal cell carcinoma [Fatal]
  - Hypercalcaemia [Unknown]
  - Polycythaemia [Unknown]
  - Decreased appetite [Unknown]
  - Oedema [Unknown]
  - Palpitations [Unknown]
